FAERS Safety Report 13535654 (Version 2)
Quarter: 2017Q2

REPORT INFORMATION
  Report Type: Spontaneous
  Country: JP (occurrence: JP)
  Receive Date: 20170511
  Receipt Date: 20170609
  Transmission Date: 20170830
  Serious: Yes (Other)
  Sender: FDA-Public Use
  Company Number: JP-PFIZER INC-2017204316

PATIENT
  Age: 77 Year
  Sex: Female

DRUGS (12)
  1. LIXIANA [Concomitant]
     Active Substance: EDOXABAN TOSYLATE
     Indication: DEEP VEIN THROMBOSIS
     Dosage: 30 MG, 1X/DAY
     Route: 048
     Dates: start: 20170411
  2. FLAGYL [Suspect]
     Active Substance: METRONIDAZOLE\METRONIDAZOLE HYDROCHLORIDE
     Indication: CYSTITIS
     Dosage: 250 MG, 3X/DAY
     Route: 048
     Dates: start: 20170410, end: 20170419
  3. MEYLON [Concomitant]
     Active Substance: SODIUM BICARBONATE
     Dosage: FROM 1.4MG X 4 TIMES TO 1.4MG X 7 TIMES PER DAY
     Route: 042
     Dates: start: 20170410, end: 20170418
  4. DIFLUCAN [Suspect]
     Active Substance: FLUCONAZOLE
     Indication: FUNGAL INFECTION
     Dosage: 100 MG, 1X/DAY
     Route: 048
     Dates: start: 20170414
  5. METHOTREXATE. [Suspect]
     Active Substance: METHOTREXATE
     Indication: LYMPHOMA
     Dosage: 4720 MG, DAILY
     Route: 042
     Dates: start: 20170411, end: 20170411
  6. PROTECADIN [Concomitant]
     Active Substance: LAFUTIDINE
     Indication: PROPHYLAXIS AGAINST GASTROINTESTINAL ULCER
     Dosage: 10 MG, 2X/DAY
     Route: 048
     Dates: start: 20170407
  7. LIPITOR [Concomitant]
     Active Substance: ATORVASTATIN CALCIUM
     Indication: DYSLIPIDAEMIA
     Dosage: 5 MG, 1X/DAY
     Route: 048
  8. LEUCOVORIN. [Concomitant]
     Active Substance: LEUCOVORIN
     Dosage: 24 MG, 4X/DAY
     Route: 042
     Dates: start: 20170412, end: 20170418
  9. DEXART [Concomitant]
     Active Substance: DEXAMETHASONE SODIUM PHOSPHATE
     Indication: LYMPHOMA
     Dosage: 6.6 MG, 1X/DAY
     Route: 042
     Dates: end: 20170413
  10. AMLODIPINE [Concomitant]
     Active Substance: AMLODIPINE BESYLATE
     Indication: HYPERTENSION
     Dosage: 5 MG, 1X/DAY
     Route: 048
  11. DIAMOX SEQUELS [Concomitant]
     Active Substance: ACETAZOLAMIDE
     Indication: POLYURIA
     Dosage: FROM 250 MG X 4 TIMES TO 250 MG X 5 TIMES
     Route: 048
     Dates: start: 20170410, end: 20170418
  12. FEBURIC [Concomitant]
     Active Substance: FEBUXOSTAT
     Indication: GOUT
     Dosage: 10 MG, 1X/DAY
     Route: 048

REACTIONS (1)
  - Inappropriate antidiuretic hormone secretion [Recovered/Resolved]

NARRATIVE: CASE EVENT DATE: 20170417
